FAERS Safety Report 5316429-3 (Version None)
Quarter: 2007Q2

REPORT INFORMATION
  Report Type: 
  Country: None (occurrence: None)
  Receive Date: 20070504
  Receipt Date: 20070425
  Transmission Date: 20071010
  Serious: Yes (Other)
  Sender: FDA-Public Use
  Company Number: PHEH2007US05591

PATIENT
  Sex: Female

DRUGS (3)
  1. ZELNORM [Suspect]
     Indication: IRRITABLE BOWEL SYNDROME
     Dosage: 6 MG, QD
     Route: 048
     Dates: start: 20050101, end: 20070401
  2. ZETIA [Concomitant]
     Indication: BLOOD CHOLESTEROL INCREASED
     Dosage: UNK, QD
  3. ASPIRIN [Concomitant]
     Dosage: UNK, QD

REACTIONS (7)
  - ASTHENIA [None]
  - CHEST PAIN [None]
  - DIZZINESS [None]
  - DYSPNOEA EXERTIONAL [None]
  - HYPERHIDROSIS [None]
  - LOSS OF CONSCIOUSNESS [None]
  - NAUSEA [None]
